FAERS Safety Report 19199267 (Version 1)
Quarter: 2021Q2

REPORT INFORMATION
  Report Type: Spontaneous
  Country: US (occurrence: US)
  Receive Date: 20210429
  Receipt Date: 20210429
  Transmission Date: 20210717
  Serious: No
  Sender: FDA-Public Use
  Company Number: US-CELGENEUS-USA-20210404282

PATIENT
  Sex: Male
  Weight: 99.88 kg

DRUGS (3)
  1. REVLIMID [Suspect]
     Active Substance: LENALIDOMIDE
     Dosage: 10 MILLIGRAM
     Route: 048
     Dates: start: 202006
  2. REVLIMID [Suspect]
     Active Substance: LENALIDOMIDE
     Indication: PLASMA CELL MYELOMA
     Dosage: 25 MILLIGRAM
     Route: 048
     Dates: start: 20160719
  3. REVLIMID [Suspect]
     Active Substance: LENALIDOMIDE
     Dosage: 10?12.5 MILLIGRAM
     Route: 048
     Dates: start: 201701

REACTIONS (1)
  - Gastrooesophageal reflux disease [Unknown]
